FAERS Safety Report 18374595 (Version 1)
Quarter: 2020Q4

REPORT INFORMATION
  Report Type: Spontaneous
  Country: JP (occurrence: JP)
  Receive Date: 20201012
  Receipt Date: 20201012
  Transmission Date: 20210114
  Serious: Yes (Other)
  Sender: FDA-Public Use
  Company Number: JP-PFIZER INC-2020386366

PATIENT
  Age: 82 Year
  Sex: Female

DRUGS (1)
  1. METHOTREXATE SODIUM. [Suspect]
     Active Substance: METHOTREXATE SODIUM
     Dosage: 8 MG, WEEKLY

REACTIONS (7)
  - Feeding disorder [Unknown]
  - Fluid intake reduced [Unknown]
  - Cytopenia [Unknown]
  - Oral pain [Unknown]
  - Glossodynia [Unknown]
  - Oropharyngeal pain [Unknown]
  - Glomerular filtration rate decreased [Unknown]
